FAERS Safety Report 8665061 (Version 3)
Quarter: 2012Q4

REPORT INFORMATION
  Report Type: Report from Study
  Country: CA (occurrence: CA)
  Receive Date: 20120716
  Receipt Date: 20121004
  Transmission Date: 20130627
  Serious: Yes (Other)
  Sender: FDA-Public Use
  Company Number: CA-BRISTOL-MYERS SQUIBB COMPANY-16742637

PATIENT
  Age: 58 Year
  Sex: Male

DRUGS (9)
  1. CETUXIMAB [Suspect]
     Indication: NON-SMALL CELL LUNG CANCER
     Dosage: No of courses 12
     Route: 042
     Dates: start: 20111024
  2. CISPLATIN [Suspect]
     Indication: NON-SMALL CELL LUNG CANCER
     Dosage: No of courses 4
     Route: 042
     Dates: start: 20111024
  3. VINORELBINE [Suspect]
     Indication: NON-SMALL CELL LUNG CANCER
     Dosage: No of courses 8
     Route: 042
     Dates: start: 20111024
  4. MULTIVITAMIN [Concomitant]
     Dates: start: 20111010
  5. RANITIDINE [Concomitant]
     Dates: start: 20111108
  6. EMEND [Concomitant]
     Dates: start: 20111024
  7. ONDANSETRON [Concomitant]
     Dates: start: 20111024
  8. DEXAMETHASONE [Concomitant]
     Dates: start: 20111024
  9. PROCHLORPERAZINE [Concomitant]
     Dates: start: 20111101

REACTIONS (2)
  - Pulmonary embolism [Not Recovered/Not Resolved]
  - Deep vein thrombosis [Not Recovered/Not Resolved]
